FAERS Safety Report 4596122-5 (Version None)
Quarter: 2005Q1

REPORT INFORMATION
  Report Type: 
  Country: None (occurrence: None)
  Receive Date: 20050225
  Receipt Date: 20050211
  Transmission Date: 20050727
  Serious: Yes (Hospitalization)
  Sender: FDA-Public Use
  Company Number: 2005-DE-00533GD

PATIENT
  Age: 21 Year
  Sex: Female

DRUGS (6)
  1. SERTRALINE HCL [Suspect]
     Indication: BIPOLAR I DISORDER
     Dosage: 200 MG, QHS
  2. LITHIUM CARBONATE [Suspect]
     Indication: BIPOLAR I DISORDER
     Dosage: 1650 MG, QD
  3. QUETIAPINE FUMARATE [Suspect]
     Indication: BIPOLAR I DISORDER
     Dosage: 200 MG, QHS
  4. CLONAZEPAM [Suspect]
     Indication: BIPOLAR I DISORDER
     Dosage: 2 MG, QID
  5. ZIPRASIDONE [Suspect]
     Indication: BIPOLAR I DISORDER
     Dosage: 80 MG, QHS
  6. VERAPAMIL [Suspect]
     Indication: BIPOLAR I DISORDER
     Dosage: 160 MG, BID

REACTIONS (9)
  - BIPOLAR I DISORDER [None]
  - COMMUNICATION DISORDER [None]
  - DRUG EFFECT DECREASED [None]
  - DRUG RESISTANCE [None]
  - MANIA [None]
  - PARAESTHESIA [None]
  - SKIN REACTION [None]
  - SUICIDAL IDEATION [None]
  - TREATMENT NONCOMPLIANCE [None]
